FAERS Safety Report 21247357 (Version 1)
Quarter: 2022Q3

REPORT INFORMATION
  Report Type: Spontaneous
  Country: PR (occurrence: PR)
  Receive Date: 20220824
  Receipt Date: 20220824
  Transmission Date: 20221027
  Serious: No
  Sender: FDA-Public Use
  Company Number: PR-PFIZER INC-202201084285

PATIENT
  Age: 70 Year
  Sex: Female

DRUGS (1)
  1. XELJANZ [Suspect]
     Active Substance: TOFACITINIB CITRATE
     Dosage: 5 MG, 2X/DAY, [1 TABLET BID]

REACTIONS (3)
  - Herpes zoster [Not Recovered/Not Resolved]
  - Ulcer [Not Recovered/Not Resolved]
  - Pruritus [Unknown]
